FAERS Safety Report 18405618 (Version 1)
Quarter: 2020Q4

REPORT INFORMATION
  Report Type: Spontaneous
  Country: US (occurrence: US)
  Receive Date: 20201020
  Receipt Date: 20201020
  Transmission Date: 20210114
  Serious: Yes (Hospitalization)
  Sender: FDA-Public Use
  Company Number: None

PATIENT
  Age: 73 Year
  Sex: Female

DRUGS (1)
  1. OPSUMIT [Suspect]
     Active Substance: MACITENTAN
     Indication: PULMONARY ARTERIAL HYPERTENSION
     Route: 048
     Dates: start: 20160113

REACTIONS (8)
  - Hypertension [None]
  - Fluid overload [None]
  - Pneumonia [None]
  - Dyspnoea [None]
  - Acute pulmonary oedema [None]
  - Acute kidney injury [None]
  - Respiratory failure [None]
  - Haemodialysis [None]

NARRATIVE: CASE EVENT DATE: 20200926
